FAERS Safety Report 9477458 (Version 1)
Quarter: 2013Q3

REPORT INFORMATION
  Report Type: Spontaneous
  Country: US (occurrence: US)
  Receive Date: 20130826
  Receipt Date: 20130826
  Transmission Date: 20140515
  Serious: No
  Sender: FDA-Public Use
  Company Number: US-009507513-1308USA010504

PATIENT
  Age: 54 Year
  Sex: Male

DRUGS (2)
  1. DULERA [Suspect]
     Indication: DYSPNOEA
     Dosage: 2 PUFFS 2 TIMES A DAY
     Route: 055
     Dates: start: 20130807
  2. BUTYL ALCOHOL [Concomitant]

REACTIONS (5)
  - Haematochezia [Not Recovered/Not Resolved]
  - Irritability [Not Recovered/Not Resolved]
  - Anxiety [Not Recovered/Not Resolved]
  - Dysarthria [Not Recovered/Not Resolved]
  - Dysphonia [Not Recovered/Not Resolved]
